FAERS Safety Report 6709568-3 (Version None)
Quarter: 2010Q2

REPORT INFORMATION
  Report Type: 
  Country: None (occurrence: None)
  Receive Date: 20100504
  Receipt Date: 20100427
  Transmission Date: 20101027
  Serious: Yes (Hospitalization, Other)
  Sender: FDA-Public Use
  Company Number: RU-ASTRAZENECA-2010SE15975

PATIENT
  Age: 53 Year
  Sex: Male
  Weight: 78 kg

DRUGS (7)
  1. CRESTOR [Suspect]
     Indication: HYPERCHOLESTEROLAEMIA
     Route: 048
     Dates: start: 20091116, end: 20100224
  2. CRESTOR [Suspect]
     Indication: ARTERIOSCLEROSIS
     Route: 048
     Dates: start: 20091116, end: 20100224
  3. CLARITHROMYCIN [Concomitant]
     Indication: BRONCHITIS
     Dates: start: 20100309, end: 20100313
  4. FLUIMUCIL [Concomitant]
     Indication: BRONCHITIS
     Dates: start: 20100309, end: 20100319
  5. AUGMENTIN '125' [Concomitant]
     Indication: BRONCHITIS
     Dates: start: 20100318, end: 20100329
  6. BIFIFORM [Concomitant]
     Indication: ANTIBIOTIC PROPHYLAXIS
     Dates: start: 20100319, end: 20100402
  7. FLIXONASE [Concomitant]
     Indication: VASOMOTOR RHINITIS
     Dates: start: 20100318

REACTIONS (7)
  - FATIGUE [None]
  - FRACTURE [None]
  - INJURY [None]
  - MUSCULAR WEAKNESS [None]
  - MYALGIA [None]
  - MYOPATHY [None]
  - NAUSEA [None]
